FAERS Safety Report 8485143-8 (Version None)
Quarter: 2012Q3

REPORT INFORMATION
  Report Type: 
  Country: None (occurrence: None)
  Receive Date: 20120703
  Receipt Date: 20120628
  Transmission Date: 20120928
  Serious: Yes (Other)
  Sender: FDA-Public Use
  Company Number: CA-JNJFOC-20120614720

PATIENT
  Sex: Male

DRUGS (1)
  1. STELARA [Suspect]
     Indication: PSORIASIS
     Dates: start: 20110915

REACTIONS (1)
  - PERTUSSIS [None]
